FAERS Safety Report 8923161 (Version 1)
Quarter: 2012Q4

REPORT INFORMATION
  Report Type: 
  Country: US (occurrence: US)
  Receive Date: 20121123
  Receipt Date: 20121123
  Transmission Date: 20130627
  Serious: Yes (Other)
  Sender: FDA-Public Use
  Company Number: PHEH2012US022916

PATIENT

DRUGS (2)
  1. ZOMETA [Suspect]
     Dosage: UNK
  2. VELCADE [Suspect]
     Dosage: UNK UKN, UNK

REACTIONS (3)
  - Vital functions abnormal [Unknown]
  - Malaise [Unknown]
  - Fatigue [Unknown]
